FAERS Safety Report 8305194-3 (Version None)
Quarter: 2012Q2

REPORT INFORMATION
  Report Type: 
  Country: None (occurrence: None)
  Receive Date: 20120423
  Receipt Date: 20120413
  Transmission Date: 20120825
  Serious: Yes (Other)
  Sender: FDA-Public Use
  Company Number: US-ASTRAZENECA-2010SE01349

PATIENT
  Age: 86 Year
  Sex: Female

DRUGS (6)
  1. TOPROL-XL [Suspect]
     Route: 048
  2. PRAVASTATIN [Suspect]
  3. ASCRITPION [Concomitant]
  4. ZESTRIL [Suspect]
     Dosage: GENERIC
     Route: 048
  5. ANTIBIOTICS [Concomitant]
  6. ZESTRIL [Suspect]
     Route: 048

REACTIONS (11)
  - BLOOD CHOLESTEROL INCREASED [None]
  - HEART RATE INCREASED [None]
  - CATARACT [None]
  - NIGHTMARE [None]
  - ESCHERICHIA INFECTION [None]
  - HYPOTENSION [None]
  - NOCTURIA [None]
  - LOSS OF CONSCIOUSNESS [None]
  - HYPERTENSION [None]
  - DRUG INEFFECTIVE [None]
  - BURNING SENSATION [None]
